FAERS Safety Report 7099494-5 (Version None)
Quarter: 2010Q4

REPORT INFORMATION
  Report Type: 
  Country: None (occurrence: None)
  Receive Date: 20101112
  Receipt Date: 20100304
  Transmission Date: 20110411
  Serious: Yes (Other)
  Sender: FDA-Public Use
  Company Number: CA-ROCHE-701501

PATIENT
  Sex: Male
  Weight: 81.6 kg

DRUGS (5)
  1. BEVACIZUMAB [Suspect]
     Indication: GLIOBLASTOMA
     Dosage: FORM: INFUSION VIALS
     Route: 042
     Dates: start: 20100219, end: 20100415
  2. DILANTIN [Concomitant]
  3. RANITIDINE [Concomitant]
  4. DEXAMETHASONE [Concomitant]
  5. CLOBAZAM [Concomitant]

REACTIONS (7)
  - CELLULITIS [None]
  - DYSURIA [None]
  - MALIGNANT NEOPLASM PROGRESSION [None]
  - OEDEMA PERIPHERAL [None]
  - RASH [None]
  - THROMBOSIS [None]
  - URINE ANALYSIS ABNORMAL [None]
